FAERS Safety Report 13542142 (Version 1)
Quarter: 2017Q2

REPORT INFORMATION
  Report Type: Report from Study
  Country: US (occurrence: US)
  Receive Date: 20170512
  Receipt Date: 20170512
  Transmission Date: 20170830
  Serious: Yes (Other)
  Sender: FDA-Public Use
  Company Number: US-BAUSCH-BL-2017-014254

PATIENT
  Age: 80 Year
  Sex: Male

DRUGS (8)
  1. LOTEMAX [Suspect]
     Active Substance: LOTEPREDNOL ETABONATE
     Indication: POSTOPERATIVE CARE
     Dosage: FOR WEEK 1
     Route: 047
     Dates: start: 201704
  2. LOTEMAX [Suspect]
     Active Substance: LOTEPREDNOL ETABONATE
     Dosage: FOR WEEK 4
     Route: 047
     Dates: start: 201705
  3. BESIVANCE [Suspect]
     Active Substance: BESIFLOXACIN
     Indication: POSTOPERATIVE CARE
     Dosage: USED POST-OPERATIVELY.
     Route: 047
     Dates: start: 201704
  4. PROLENSA [Suspect]
     Active Substance: BROMFENAC SODIUM
     Indication: PREOPERATIVE CARE
     Dosage: USED PRE-OPERATIVELY
     Route: 047
     Dates: start: 20170408, end: 20170409
  5. LOTEMAX [Suspect]
     Active Substance: LOTEPREDNOL ETABONATE
     Dosage: FOR WEEK 2
     Route: 047
     Dates: start: 201704
  6. BESIVANCE [Suspect]
     Active Substance: BESIFLOXACIN
     Indication: PREOPERATIVE CARE
     Dosage: USED PRE-OPERATIVELY
     Route: 047
     Dates: start: 20170408, end: 20170409
  7. LOTEMAX [Suspect]
     Active Substance: LOTEPREDNOL ETABONATE
     Dosage: FOR WEEK 3
     Route: 047
     Dates: start: 201704
  8. PROLENSA [Suspect]
     Active Substance: BROMFENAC SODIUM
     Indication: POSTOPERATIVE CARE
     Dosage: USED POST-OPERATIVELY
     Route: 047
     Dates: start: 201704

REACTIONS (2)
  - Intentional product use issue [Unknown]
  - Cystoid macular oedema [Unknown]

NARRATIVE: CASE EVENT DATE: 2017
